FAERS Safety Report 4864817-1 (Version None)
Quarter: 2005Q4

REPORT INFORMATION
  Report Type: 
  Country: None (occurrence: None)
  Receive Date: 20051222
  Receipt Date: 20050718
  Transmission Date: 20060501
  Serious: Yes (Hospitalization, Other)
  Sender: FDA-Public Use
  Company Number: US-MERCK-0507USA02842

PATIENT
  Age: 54 Year
  Sex: Male
  Weight: 118 kg

DRUGS (14)
  1. VIOXX [Suspect]
     Indication: ARTHRITIS
     Route: 048
     Dates: start: 19991201, end: 20010501
  2. DIARRET [Concomitant]
     Route: 065
  3. GLYBURIDE [Concomitant]
     Route: 065
  4. NIACIN [Concomitant]
     Route: 065
  5. ATENOLOL [Concomitant]
     Route: 065
  6. METHOCARBAMOL [Concomitant]
     Route: 065
  7. TAGAMET [Concomitant]
     Route: 065
  8. ASPIRIN [Concomitant]
     Route: 065
  9. LISINOPRIL [Concomitant]
     Route: 065
  10. PLAVIX [Concomitant]
     Route: 065
  11. COREG [Concomitant]
     Route: 065
  12. [THERAPY UNSPECIFIED] [Concomitant]
     Route: 065
  13. LASIX [Concomitant]
     Route: 065
  14. POTASSIUM (UNSPECIFIED) [Concomitant]
     Route: 065

REACTIONS (18)
  - ABDOMINAL PAIN UPPER [None]
  - ADVERSE EVENT [None]
  - CARDIAC FAILURE CONGESTIVE [None]
  - CARDIOVASCULAR DISORDER [None]
  - CHEST PAIN [None]
  - CHOLELITHIASIS [None]
  - CORONARY ARTERY DISEASE [None]
  - DIARRHOEA [None]
  - HAEMOPTYSIS [None]
  - HEADACHE [None]
  - INFLUENZA [None]
  - JOINT DISLOCATION [None]
  - LUNG DISORDER [None]
  - MYOCARDIAL INFARCTION [None]
  - OVERDOSE [None]
  - RECTAL HAEMORRHAGE [None]
  - ULCER HAEMORRHAGE [None]
  - VISION BLURRED [None]
